FAERS Safety Report 14528079 (Version 2)
Quarter: 2018Q2

REPORT INFORMATION
  Report Type: Spontaneous
  Country: FR (occurrence: FR)
  Receive Date: 20180213
  Receipt Date: 20180606
  Transmission Date: 20180711
  Serious: Yes (Other)
  Sender: FDA-Public Use
  Company Number: FR-MERCK KGAA-2041914

PATIENT
  Age: 74 Year
  Sex: Female
  Weight: 53 kg

DRUGS (2)
  1. NOVOTHYROX [Suspect]
     Active Substance: LEVOTHYROXINE SODIUM
     Indication: POST PROCEDURAL HYPOTHYROIDISM
     Dates: start: 201704
  2. LEVOTHYROX NF [Suspect]
     Active Substance: LEVOTHYROXINE SODIUM

REACTIONS (10)
  - Gastrooesophageal reflux disease [Recovered/Resolved]
  - Hiccups [Recovered/Resolved]
  - Tachycardia [Recovering/Resolving]
  - Gastrointestinal disorder [Recovered/Resolved]
  - Weight increased [None]
  - Headache [None]
  - Hypertension [Recovering/Resolving]
  - Abdominal pain upper [Recovered/Resolved]
  - Blood thyroid stimulating hormone abnormal [Recovered/Resolved]
  - Fatigue [Not Recovered/Not Resolved]

NARRATIVE: CASE EVENT DATE: 2017
